FAERS Safety Report 15391582 (Version 1)
Quarter: 2018Q3

REPORT INFORMATION
  Report Type: Spontaneous
  Country: US (occurrence: US)
  Receive Date: 20180910
  Receipt Date: 20180910
  Transmission Date: 20181010
  Serious: Yes (Other)
  Sender: FDA-Public Use
  Company Number: None

PATIENT
  Age: 31 Year
  Sex: Male
  Weight: 108 kg

DRUGS (1)
  1. AMOXICILLAN [Suspect]
     Active Substance: AMOXICILLIN
     Indication: TOOTH DISORDER
     Dates: start: 20180831, end: 20180903

REACTIONS (4)
  - Rash [None]
  - Pruritus generalised [None]
  - Throat irritation [None]
  - Ear pruritus [None]

NARRATIVE: CASE EVENT DATE: 20180903
